FAERS Safety Report 11123514 (Version 2)
Quarter: 2015Q3

REPORT INFORMATION
  Report Type: Spontaneous
  Country: FR (occurrence: FR)
  Receive Date: 20150519
  Receipt Date: 20150727
  Transmission Date: 20151125
  Serious: Yes (Hospitalization)
  Sender: FDA-Public Use
  Company Number: PHHY2015FR060512

PATIENT
  Age: 38 Year
  Sex: Male

DRUGS (1)
  1. LAMISIL [Suspect]
     Active Substance: TERBINAFINE HYDROCHLORIDE
     Indication: ONYCHOMYCOSIS
     Dosage: UNK
     Route: 048
     Dates: start: 20150313, end: 20150409

REACTIONS (3)
  - Hypoprothrombinaemia [Recovered/Resolved]
  - Blister [Recovered/Resolved]
  - Coagulation factor X level decreased [Recovered/Resolved]

NARRATIVE: CASE EVENT DATE: 20150323
